FAERS Safety Report 17971452 (Version 1)
Quarter: 2020Q3

REPORT INFORMATION
  Report Type: Spontaneous
  Country: GB (occurrence: GB)
  Receive Date: 20200701
  Receipt Date: 20200701
  Transmission Date: 20201103
  Serious: Yes (Other)
  Sender: FDA-Public Use
  Company Number: NVSC2020GB181310

PATIENT
  Age: 55 Year
  Sex: Male
  Weight: 61.9 kg

DRUGS (2)
  1. ETOPOSIDE. [Suspect]
     Active Substance: ETOPOSIDE
     Indication: ANAL CANCER METASTATIC
     Dosage: UNK(6 CYCLES WITH CONCURRENT RADIOTHERAPY CYCLES #4, #5 AND #6)
     Route: 065
     Dates: start: 201707, end: 201711
  2. CARBOPLATIN. [Suspect]
     Active Substance: CARBOPLATIN
     Indication: ANAL CANCER METASTATIC
     Dosage: (6 CYCLES WITH CONCURRENT RADIOTHERAPY CYCLES #4, #5 AND #6)
     Route: 065
     Dates: start: 201707, end: 201711

REACTIONS (4)
  - Metastases to pelvis [Unknown]
  - Metastases to lung [Unknown]
  - Metastases to liver [Unknown]
  - Product use in unapproved indication [Recovered/Resolved]

NARRATIVE: CASE EVENT DATE: 201707
